FAERS Safety Report 9998894 (Version 2)
Quarter: 2014Q1

REPORT INFORMATION
  Report Type: Spontaneous
  Country: RU (occurrence: RU)
  Receive Date: 20140312
  Receipt Date: 20140318
  Transmission Date: 20141002
  Serious: Yes (Hospitalization)
  Sender: FDA-Public Use
  Company Number: RU-JNJFOC-20140304746

PATIENT
  Age: 4 Year
  Sex: Female

DRUGS (2)
  1. ZYRTEC [Suspect]
     Route: 048
  2. ZYRTEC [Suspect]
     Indication: ACUTE TONSILLITIS
     Route: 048
     Dates: start: 20140226, end: 20140227

REACTIONS (4)
  - Ketoacidosis [Unknown]
  - Anxiety [Unknown]
  - Off label use [Unknown]
  - Somnolence [Unknown]
